FAERS Safety Report 7240585-3 (Version None)
Quarter: 2011Q1

REPORT INFORMATION
  Report Type: 
  Country: None (occurrence: None)
  Receive Date: 20110120
  Receipt Date: 20110120
  Transmission Date: 20110831
  Serious: Yes (Life-Threatening, Hospitalization, Other)
  Sender: FDA-Public Use
  Company Number: None

PATIENT
  Age: 38 Year
  Sex: Female
  Weight: 57.1532 kg

DRUGS (2)
  1. ZYPREXA [Suspect]
     Indication: BIPOLAR DISORDER
     Dates: start: 20000201, end: 20071101
  2. ZYPREXA [Suspect]
     Indication: AFFECTIVE DISORDER
     Dates: start: 20000201, end: 20071101

REACTIONS (4)
  - WEIGHT INCREASED [None]
  - THROMBOTIC THROMBOCYTOPENIC PURPURA [None]
  - MENTAL STATUS CHANGES [None]
  - BLOOD POTASSIUM DECREASED [None]
